FAERS Safety Report 4772517-1 (Version None)
Quarter: 2005Q3

REPORT INFORMATION
  Report Type: 
  Country: None (occurrence: None)
  Receive Date: 20050916
  Receipt Date: 20050916
  Transmission Date: 20060218
  Serious: No
  Sender: FDA-Public Use
  Company Number: None

PATIENT
  Sex: Male
  Weight: 77.1115 kg

DRUGS (2)
  1. TYLENOL SINUS MAXIMUM STRENGTH MCNEIL [Suspect]
     Indication: NASOPHARYNGITIS
     Dosage: 2 CAPLETS EVERY 6 HRS. PO
     Route: 048
     Dates: start: 20050102, end: 20050104
  2. TYLENOL SINUS MAXIMUM STRENGTH MCNEIL [Suspect]
     Indication: SINUS CONGESTION
     Dosage: 2 CAPLETS EVERY 6 HRS. PO
     Route: 048
     Dates: start: 20050102, end: 20050104

REACTIONS (10)
  - ASTHENIA [None]
  - BLOOD PRESSURE ABNORMAL [None]
  - DISCOMFORT [None]
  - DIZZINESS [None]
  - EMOTIONAL DISORDER [None]
  - EXTRASYSTOLES [None]
  - HEART RATE INCREASED [None]
  - NECK PAIN [None]
  - PALPITATIONS [None]
  - SLEEP DISORDER [None]
